FAERS Safety Report 19972630 (Version 1)
Quarter: 2021Q4

REPORT INFORMATION
  Report Type: Spontaneous
  Country: US (occurrence: US)
  Receive Date: 20211019
  Receipt Date: 20211019
  Transmission Date: 20220303
  Serious: Yes (Hospitalization)
  Sender: FDA-Public Use
  Company Number: None

PATIENT
  Age: 70 Year
  Sex: Female
  Weight: 91.6 kg

DRUGS (20)
  1. FERRLECIT [Suspect]
     Active Substance: SODIUM FERRIC GLUCONATE COMPLEX
     Indication: Iron deficiency anaemia
     Dosage: ?          OTHER FREQUENCY:ONCE;
     Route: 042
  2. ACETAMINOPHEN [Concomitant]
     Active Substance: ACETAMINOPHEN
  3. AMLODIPINE [Concomitant]
     Active Substance: AMLODIPINE BESYLATE
  4. calcium carbonate vitamin D and K2 [Concomitant]
  5. CERTOLIZUMAB [Concomitant]
     Active Substance: CERTOLIZUMAB
  6. CHLOROQUINE [Concomitant]
     Active Substance: CHLOROQUINE
  7. COLESTIPOL [Concomitant]
     Active Substance: COLESTIPOL
  8. FAMOTIDINE [Concomitant]
     Active Substance: FAMOTIDINE
  9. fluticasone (Advair) [Concomitant]
  10. FUROSEMIDE [Concomitant]
     Active Substance: FUROSEMIDE
  11. GLIPIZIDE [Concomitant]
     Active Substance: GLIPIZIDE
  12. ACETAMINOPHEN\HYDROCODONE [Concomitant]
     Active Substance: ACETAMINOPHEN\HYDROCODONE
  13. LEVOTHYROXINE [Concomitant]
     Active Substance: LEVOTHYROXINE
  14. LORATADINE [Concomitant]
     Active Substance: LORATADINE
  15. METOPROLOL [Concomitant]
     Active Substance: METOPROLOL
  16. VITAMINS [Concomitant]
     Active Substance: VITAMINS
  17. PREDNISONE [Concomitant]
     Active Substance: PREDNISONE
  18. PREGABALIN [Concomitant]
     Active Substance: PREGABALIN
  19. ROSUVASTATIN [Concomitant]
     Active Substance: ROSUVASTATIN
  20. TRAMADOL [Concomitant]
     Active Substance: TRAMADOL

REACTIONS (4)
  - Hypotension [None]
  - Hyperhidrosis [None]
  - Pallor [None]
  - Oxygen saturation decreased [None]
